FAERS Safety Report 12430397 (Version 1)
Quarter: 2016Q2

REPORT INFORMATION
  Report Type: Report from Study
  Country: JP (occurrence: JP)
  Receive Date: 20160602
  Receipt Date: 20160602
  Transmission Date: 20160815
  Serious: Yes (Death)
  Sender: FDA-Public Use
  Company Number: JP-009507513-1504JPN022572

PATIENT
  Age: 85 Year
  Sex: Female
  Weight: 35 kg

DRUGS (5)
  1. VANCOMYCIN [Concomitant]
     Active Substance: VANCOMYCIN
     Indication: BACTERIAL SEPSIS
     Dosage: 1500 MG, QD
     Route: 041
     Dates: start: 20140313, end: 20140316
  2. CUBICIN [Suspect]
     Active Substance: DAPTOMYCIN
     Indication: BACTERIAL SEPSIS
     Dosage: 6 MG/KG, ONCE DAILY
     Route: 041
     Dates: start: 20140316, end: 20140321
  3. CRAVIT [Concomitant]
     Active Substance: LEVOFLOXACIN
     Indication: PRODUCT USED FOR UNKNOWN INDICATION
     Dosage: 500 MG, QD
     Route: 051
     Dates: start: 20140316, end: 20140320
  4. CUBICIN [Suspect]
     Active Substance: DAPTOMYCIN
     Indication: OFF LABEL USE
  5. ZOSYN [Concomitant]
     Active Substance: PIPERACILLIN SODIUM\TAZOBACTAM SODIUM
     Indication: BACTERIAL SEPSIS
     Dosage: 9 G, QD
     Route: 041
     Dates: start: 20140311, end: 20140316

REACTIONS (2)
  - Bile duct cancer [Fatal]
  - Off label use [Fatal]

NARRATIVE: CASE EVENT DATE: 20140322
